FAERS Safety Report 9860568 (Version 2)
Quarter: 2014Q1

REPORT INFORMATION
  Report Type: Spontaneous
  Country: US (occurrence: US)
  Receive Date: 20140202
  Receipt Date: 20140320
  Transmission Date: 20141002
  Serious: Yes (Other)
  Sender: FDA-Public Use
  Company Number: US-PFIZER INC-2014031137

PATIENT
  Age: 78 Year
  Sex: Female
  Weight: 58.96 kg

DRUGS (4)
  1. EFFEXOR XR [Suspect]
     Indication: DEPRESSION
     Dosage: 75 MG, DAILY
  2. EFFEXOR XR [Suspect]
     Dosage: 75 MG, DAILY
     Dates: start: 201401
  3. VENLAFAXINE HYDROCHLORIDE [Suspect]
     Dosage: UNK
  4. LATANOPROST [Concomitant]
     Indication: GLAUCOMA
     Dosage: DAILY
     Route: 047

REACTIONS (2)
  - Fall [Unknown]
  - Upper limb fracture [Unknown]
